FAERS Safety Report 22309179 (Version 3)
Quarter: 2023Q4

REPORT INFORMATION
  Report Type: Report from Study
  Country: CN (occurrence: CN)
  Receive Date: 20230511
  Receipt Date: 20231027
  Transmission Date: 20240110
  Serious: Yes (Hospitalization)
  Sender: FDA-Public Use
  Company Number: CN-BoehringerIngelheim-2023-BI-236009

PATIENT
  Age: 68 Year
  Sex: Male
  Weight: 57 kg

DRUGS (5)
  1. NINTEDANIB [Suspect]
     Active Substance: NINTEDANIB
     Indication: Interstitial lung disease
     Route: 048
     Dates: start: 20221227, end: 20230324
  2. NINTEDANIB [Suspect]
     Active Substance: NINTEDANIB
     Dates: start: 20230406
  3. Prednisone acetate tablet [Concomitant]
     Indication: Interstitial lung disease
     Route: 048
     Dates: start: 20220227
  4. Calcium carbonate D3 tablets [Concomitant]
     Indication: Prophylaxis
     Dosage: 1 TABLET
     Route: 048
     Dates: start: 20210826
  5. Lansoprazole enteric-coated tablets [Concomitant]
     Indication: Prophylaxis
     Dosage: FORM OF ADMIN.: ENTERIC-COATED TABLET? 2 TABLETS
     Route: 048
     Dates: start: 20210826

REACTIONS (1)
  - Complicated appendicitis [Recovered/Resolved]

NARRATIVE: CASE EVENT DATE: 20230325
